FAERS Safety Report 10266298 (Version 1)
Quarter: 2014Q2

REPORT INFORMATION
  Report Type: Spontaneous
  Country: FR (occurrence: FR)
  Receive Date: 20140627
  Receipt Date: 20140627
  Transmission Date: 20141212
  Serious: Yes (Hospitalization, Other)
  Sender: FDA-Public Use
  Company Number: FR-ASTRAZENECA-2014SE45553

PATIENT
  Age: 53 Year
  Sex: Male

DRUGS (14)
  1. MOPRAL [Suspect]
     Route: 048
     Dates: end: 20131122
  2. BACTRIM [Suspect]
     Route: 048
     Dates: start: 20131104, end: 20131119
  3. ORBENINE [Suspect]
     Route: 048
     Dates: start: 20131104, end: 20131115
  4. DALACINE [Suspect]
     Route: 048
     Dates: start: 20131115, end: 20131119
  5. TAHOR [Concomitant]
     Route: 048
  6. NOVONORM [Concomitant]
     Route: 048
     Dates: end: 20131122
  7. GLUCOPHAGE [Concomitant]
     Route: 048
     Dates: end: 20131122
  8. KARDEGIC [Concomitant]
     Route: 048
  9. CARDENSIEL [Concomitant]
     Route: 048
  10. TRIATEC [Concomitant]
     Route: 048
  11. DAFALGAN [Concomitant]
     Route: 048
  12. LOVENOX [Concomitant]
     Route: 058
     Dates: end: 20131122
  13. XANAX [Concomitant]
     Route: 048
  14. NICOPATCH [Concomitant]
     Dosage: 14 MG/24 HOURS 1 DF EVERY DAY
     Route: 062

REACTIONS (3)
  - Renal failure acute [Recovered/Resolved]
  - Haematoma infection [Unknown]
  - Post procedural haematoma [Unknown]
